FAERS Safety Report 5863494-0 (Version None)
Quarter: 2008Q3

REPORT INFORMATION
  Report Type: 
  Country: None (occurrence: None)
  Receive Date: 20080828
  Receipt Date: 20080821
  Transmission Date: 20090109
  Serious: Yes (Other)
  Sender: FDA-Public Use
  Company Number: US-PFIZER INC-2008070810

PATIENT
  Sex: Female

DRUGS (3)
  1. LIPITOR [Suspect]
     Indication: FAMILIAL HYPERTRIGLYCERIDAEMIA
  2. LIPITOR [Suspect]
  3. TRICOR [Suspect]

REACTIONS (1)
  - ABORTION SPONTANEOUS [None]
